FAERS Safety Report 10595742 (Version 2)
Quarter: 2015Q1

REPORT INFORMATION
  Report Type: Spontaneous
  Country: US (occurrence: US)
  Receive Date: 20141120
  Receipt Date: 20150217
  Transmission Date: 20150720
  Serious: No
  Sender: FDA-Public Use
  Company Number: US-AMARIN PHARMA, INC.-2014AMR000052

PATIENT
  Age: 63 Year
  Sex: Male
  Weight: 69.01 kg

DRUGS (7)
  1. GEMFIBROZIL. [Concomitant]
     Active Substance: GEMFIBROZIL
     Indication: BLOOD TRIGLYCERIDES INCREASED
     Route: 048
     Dates: end: 20130725
  2. ASPIRIN. [Concomitant]
     Active Substance: ASPIRIN
     Indication: PRODUCT USED FOR UNKNOWN INDICATION
     Dosage: BABY ASPIRIN DAILY
     Route: 065
  3. VASCEPA [Suspect]
     Active Substance: ETHYL ICOSAPENTATE
     Indication: BLOOD TRIGLYCERIDES INCREASED
     Dosage: 1 CAPSULE TWICE DAILY
     Route: 065
     Dates: start: 20130725, end: 20130817
  4. VASCEPA [Suspect]
     Active Substance: ETHYL ICOSAPENTATE
     Dosage: 2 CAPSULES IN THE MORNING, 1 CAPSULE IN THE EVENING
     Route: 048
     Dates: start: 20130723, end: 20130725
  5. GEMFIBROZIL. [Concomitant]
     Active Substance: GEMFIBROZIL
     Route: 065
     Dates: start: 201307
  6. VASCEPA [Suspect]
     Active Substance: ETHYL ICOSAPENTATE
     Dosage: 2 CAPSULES IN AM. 1 CAPSULE IN THE EVENING
     Route: 065
     Dates: start: 20130817
  7. FLOMAX [Concomitant]
     Active Substance: TAMSULOSIN HYDROCHLORIDE
     Indication: PROSTATE EXAMINATION ABNORMAL
     Route: 065

REACTIONS (1)
  - Feeling abnormal [Recovered/Resolved]
